FAERS Safety Report 15093551 (Version 1)
Quarter: 2018Q2

REPORT INFORMATION
  Report Type: Spontaneous
  Country: US (occurrence: US)
  Receive Date: 20180629
  Receipt Date: 20180629
  Transmission Date: 20180711
  Serious: No
  Sender: FDA-Public Use
  Company Number: US-009507513-1806USA012080

PATIENT
  Sex: Female
  Weight: 79.37 kg

DRUGS (2)
  1. NEXPLANON [Suspect]
     Active Substance: ETONOGESTREL
     Indication: CONTRACEPTION
     Dosage: 3 YEARS
     Route: 059
     Dates: start: 2012, end: 2015
  2. NEXPLANON [Suspect]
     Active Substance: ETONOGESTREL
     Dosage: 3 YEARS
     Dates: start: 2015, end: 20180522

REACTIONS (4)
  - Infertility [Not Recovered/Not Resolved]
  - Complication of device removal [Recovered/Resolved]
  - Abdominal pain [Not Recovered/Not Resolved]
  - Weight increased [Not Recovered/Not Resolved]

NARRATIVE: CASE EVENT DATE: 2015
